FAERS Safety Report 7250572-7 (Version None)
Quarter: 2011Q1

REPORT INFORMATION
  Report Type: 
  Country: None (occurrence: None)
  Receive Date: 20110121
  Receipt Date: 20110121
  Transmission Date: 20110831
  Serious: Yes (Hospitalization)
  Sender: FDA-Public Use
  Company Number: None

PATIENT
  Age: 26 Year
  Sex: Male
  Weight: 58.514 kg

DRUGS (3)
  1. PROPRANOLOL [Concomitant]
  2. LURASIDONE [Suspect]
     Indication: SCHIZOPHRENIA
     Dosage: 80 MG
     Dates: start: 20101223, end: 20110114
  3. CLONAZEPAM [Concomitant]

REACTIONS (7)
  - AGGRESSION [None]
  - AGITATION [None]
  - GRANDIOSITY [None]
  - ALCOHOL USE [None]
  - HALLUCINATION, AUDITORY [None]
  - SEXUALLY INAPPROPRIATE BEHAVIOUR [None]
  - PARANOIA [None]
